FAERS Safety Report 6030674-3 (Version None)
Quarter: 2009Q1

REPORT INFORMATION
  Report Type: 
  Country: None (occurrence: None)
  Receive Date: 20090106
  Receipt Date: 20090106
  Transmission Date: 20090719
  Serious: Yes (Other)
  Sender: FDA-Public Use
  Company Number: None

PATIENT
  Age: 47 Year
  Sex: Male
  Weight: 102.0593 kg

DRUGS (1)
  1. CHANTIX [Suspect]
     Indication: SMOKING CESSATION THERAPY
     Dosage: 1 MG TAB BID PO
     Route: 048
     Dates: start: 20081015, end: 20081218

REACTIONS (4)
  - AGGRESSION [None]
  - AMNESIA [None]
  - PSYCHOTIC DISORDER [None]
  - UNRESPONSIVE TO STIMULI [None]
